FAERS Safety Report 6638269-5 (Version None)
Quarter: 2010Q1

REPORT INFORMATION
  Report Type: 
  Country: None (occurrence: None)
  Receive Date: 20100317
  Receipt Date: 20100302
  Transmission Date: 20100710
  Serious: Yes (Hospitalization)
  Sender: FDA-Public Use
  Company Number: US-ROCHE-688765

PATIENT
  Sex: Female
  Weight: 64 kg

DRUGS (17)
  1. DIAZEPAM [Suspect]
     Route: 065
     Dates: start: 20090701, end: 20090701
  2. CHANTIX [Suspect]
     Indication: DRUG USE FOR UNKNOWN INDICATION
     Dosage: FILM COATED TABLET
     Route: 065
     Dates: start: 20081201, end: 20090702
  3. CHANTIX [Suspect]
     Route: 065
     Dates: start: 20100208
  4. GEODON [Suspect]
     Dosage: STOP DATE: 2009
     Route: 065
     Dates: start: 20090701
  5. DARVOCET [Suspect]
     Indication: DRUG USE FOR UNKNOWN INDICATION
     Route: 065
  6. SEROQUEL [Suspect]
     Indication: DEPRESSION
     Dosage: ONCE OR TWICE DAILY
     Route: 065
     Dates: start: 20090601
  7. SEROQUEL [Suspect]
     Route: 065
  8. ATIVAN [Suspect]
     Route: 065
     Dates: start: 20090701, end: 20090701
  9. TEGRETOL [Suspect]
     Indication: BIPOLAR DISORDER
     Route: 065
  10. TEGRETOL [Suspect]
     Route: 065
     Dates: start: 20090601, end: 20090701
  11. TEGRETOL [Suspect]
     Dosage: STOP DATE: 2009
     Route: 065
     Dates: start: 20090701
  12. BENADRYL [Concomitant]
     Indication: HYPERSENSITIVITY
  13. PROPRANOLOL [Concomitant]
     Indication: TREMOR
  14. WELLBUTRIN [Concomitant]
     Dates: start: 20090701
  15. LEXAPRO [Concomitant]
  16. DESYREL [Concomitant]
  17. SIMVASTATIN [Concomitant]
     Indication: BLOOD CHOLESTEROL INCREASED

REACTIONS (8)
  - AMNESIA [None]
  - CATHETERISATION CARDIAC [None]
  - DEPRESSION [None]
  - EXTRAPYRAMIDAL DISORDER [None]
  - HYPONATRAEMIA [None]
  - MANIA [None]
  - PSYCHOTIC DISORDER [None]
  - TACHYCARDIA [None]
